FAERS Safety Report 8174817-4 (Version None)
Quarter: 2012Q1

REPORT INFORMATION
  Report Type: 
  Country: None (occurrence: None)
  Receive Date: 20120229
  Receipt Date: 20120222
  Transmission Date: 20120608
  Serious: Yes (Disabling)
  Sender: FDA-Public Use
  Company Number: CA-ABBOTT-12P-028-0907535-00

PATIENT
  Age: 19 Year
  Sex: Male
  Weight: 85 kg

DRUGS (1)
  1. BIAXIN XL [Suspect]
     Indication: PRODUCT USED FOR UNKNOWN INDICATION
     Route: 048

REACTIONS (7)
  - INSOMNIA [None]
  - MENTAL IMPAIRMENT [None]
  - MOOD SWINGS [None]
  - PARANOIA [None]
  - EYE DISORDER [None]
  - EUPHORIC MOOD [None]
  - MYDRIASIS [None]
